FAERS Safety Report 4336072-2 (Version None)
Quarter: 2004Q1

REPORT INFORMATION
  Report Type: 
  Country: None (occurrence: None)
  Receive Date: 20040329
  Receipt Date: 20040105
  Transmission Date: 20041129
  Serious: No
  Sender: FDA-Public Use
  Company Number: USA040155788

PATIENT
  Age: 9 Year
  Sex: Female

DRUGS (3)
  1. STRATTERA [Suspect]
     Dosage: 25 MG/DAY
     Dates: start: 20031223
  2. ZYPREXA [Suspect]
     Dosage: 30 MG/DAY
     Dates: start: 20031014
  3. ADDERALL 10 [Concomitant]

REACTIONS (2)
  - DYSTONIA [None]
  - PRESCRIBED OVERDOSE [None]
